FAERS Safety Report 25842425 (Version 1)
Quarter: 2025Q3

REPORT INFORMATION
  Report Type: Spontaneous
  Country: EU (occurrence: EU)
  Receive Date: 20250924
  Receipt Date: 20250924
  Transmission Date: 20251020
  Serious: Yes (Death, Life-Threatening, Other)
  Sender: AMGEN
  Company Number: EU-AMGEN-ESPSP2025186932

PATIENT

DRUGS (1)
  1. CARFILZOMIB [Suspect]
     Active Substance: CARFILZOMIB
     Indication: Product used for unknown indication
     Route: 065

REACTIONS (7)
  - Cardiovascular disorder [Fatal]
  - Cardiac failure [Unknown]
  - Atrial fibrillation [Unknown]
  - Atrial flutter [Unknown]
  - Embolism [Unknown]
  - Hypertension [Unknown]
  - Ischaemia [Unknown]
